FAERS Safety Report 24135930 (Version 1)
Quarter: 2024Q3

REPORT INFORMATION
  Report Type: Spontaneous
  Country: JP (occurrence: JP)
  Receive Date: 20240725
  Receipt Date: 20240725
  Transmission Date: 20241017
  Serious: Yes (Death, Life-Threatening, Hospitalization, Other)
  Sender: ACCORD
  Company Number: JP-Accord-436797

PATIENT
  Age: 86 Year
  Sex: Male

DRUGS (3)
  1. TEMOZOLOMIDE [Suspect]
     Active Substance: TEMOZOLOMIDE
     Indication: Glioblastoma
  2. SULFAMETHOXAZOLE [Concomitant]
     Active Substance: SULFAMETHOXAZOLE
     Indication: Prophylaxis
     Dosage: EVERY OTHER DAYS
  3. TRIMETHOPRIM [Concomitant]
     Active Substance: TRIMETHOPRIM
     Indication: Prophylaxis
     Dosage: EVERY OTHER DAY

REACTIONS (9)
  - Lymphopenia [Not Recovered/Not Resolved]
  - Pleural effusion [Unknown]
  - Fluid retention [Unknown]
  - Multiple organ dysfunction syndrome [Fatal]
  - Septic shock [Fatal]
  - Systemic candida [Fatal]
  - Loss of personal independence in daily activities [Unknown]
  - Bacillus infection [Fatal]
  - Enterobacter infection [Fatal]
